FAERS Safety Report 19013084 (Version 1)
Quarter: 2021Q1

REPORT INFORMATION
  Report Type: Spontaneous
  Country: US (occurrence: US)
  Receive Date: 20210316
  Receipt Date: 20210316
  Transmission Date: 20210420
  Serious: No
  Sender: FDA-Public Use
  Company Number: US-FDC LIMITED-2020RIS00331

PATIENT
  Age: 69 Year
  Sex: Female
  Weight: 88.44 kg

DRUGS (3)
  1. OFLOXACIN. [Suspect]
     Active Substance: OFLOXACIN
     Dosage: 3 DROPS IN THE RIGHT EAR, 2X/DAY
     Route: 001
     Dates: start: 202003
  2. OFLOXACIN. [Suspect]
     Active Substance: OFLOXACIN
     Indication: EAR INFECTION
     Dosage: 3 DROPS IN THE RIGHT EAR, 2X/DAY
     Route: 001
     Dates: start: 201912
  3. LYRICA CR [Concomitant]
     Active Substance: PREGABALIN
     Dosage: 200 MG, 3X/DAY
     Route: 048

REACTIONS (5)
  - Product dose omission issue [Recovered/Resolved]
  - Product use in unapproved indication [Not Recovered/Not Resolved]
  - Otorrhoea [Unknown]
  - Dry mouth [Unknown]
  - Product use issue [Not Recovered/Not Resolved]

NARRATIVE: CASE EVENT DATE: 201912
